FAERS Safety Report 5602345-6 (Version None)
Quarter: 2008Q1

REPORT INFORMATION
  Report Type: 
  Country: None (occurrence: None)
  Receive Date: 20080111
  Receipt Date: 20071019
  Transmission Date: 20080703
  Serious: Yes (Hospitalization, Other)
  Sender: FDA-Public Use
  Company Number: HQWYE996922OCT04

PATIENT
  Age: 59 Year
  Sex: Female

DRUGS (5)
  1. PREMPRO [Suspect]
  2. ACTIVELLA [Suspect]
  3. ESTRACE [Suspect]
  4. MEDROXYPROGESTRONE ACETATE (MEDROXYPROGESTERONE ACETATE, ) [Suspect]
  5. PREMARIN [Suspect]

REACTIONS (1)
  - BREAST CANCER [None]
